FAERS Safety Report 12613983 (Version 1)
Quarter: 2016Q3

REPORT INFORMATION
  Report Type: Spontaneous
  Country: HK (occurrence: None)
  Receive Date: 20160801
  Receipt Date: 20160801
  Transmission Date: 20161109
  Serious: Yes (Hospitalization)
  Sender: FDA-Public Use
  Company Number: None

PATIENT
  Age: 31 Year
  Sex: Male
  Weight: 53.9 kg

DRUGS (3)
  1. GEMCITABINE HYDROCHLORIDE. [Suspect]
     Active Substance: GEMCITABINE HYDROCHLORIDE
     Dates: end: 20160601
  2. TAXOL [Suspect]
     Active Substance: PACLITAXEL
     Dates: end: 20160601
  3. THYMOL GARGLE MOUTHWASH [Concomitant]

REACTIONS (3)
  - Rhinorrhoea [None]
  - Pyrexia [None]
  - Productive cough [None]

NARRATIVE: CASE EVENT DATE: 20160608
